FAERS Safety Report 9637262 (Version 1)
Quarter: 2013Q4

REPORT INFORMATION
  Report Type: Spontaneous
  Country: US (occurrence: US)
  Receive Date: 20131022
  Receipt Date: 20131022
  Transmission Date: 20140711
  Serious: No
  Sender: FDA-Public Use
  Company Number: US-BIOGENIDEC-2013BI098807

PATIENT
  Age: 57 Year
  Sex: Female

DRUGS (1)
  1. TYSABRI [Suspect]
     Indication: MULTIPLE SCLEROSIS
     Route: 042
     Dates: start: 20071023

REACTIONS (4)
  - Dysarthria [Not Recovered/Not Resolved]
  - Tongue paralysis [Not Recovered/Not Resolved]
  - Glomus jugulare tumour [Not Recovered/Not Resolved]
  - Tumour compression [Not Recovered/Not Resolved]
